FAERS Safety Report 10512334 (Version 1)
Quarter: 2014Q4

REPORT INFORMATION
  Report Type: Report from Study
  Country: US (occurrence: US)
  Receive Date: 20141010
  Receipt Date: 20141010
  Transmission Date: 20150528
  Serious: Yes (Other)
  Sender: FDA-Public Use
  Company Number: PHEH2014US020146

PATIENT
  Sex: Female

DRUGS (3)
  1. TOBI [Suspect]
     Active Substance: TOBRAMYCIN
     Indication: PSEUDOMONAS INFECTION
     Dosage: 1 DF, BID (1 VIAL INHALATION 2 DAILY )
     Route: 055
  2. TOBI [Suspect]
     Active Substance: TOBRAMYCIN
     Indication: BRONCHIECTASIS
  3. TOBI [Suspect]
     Active Substance: TOBRAMYCIN
     Indication: INFECTIVE EXACERBATION OF BRONCHIECTASIS

REACTIONS (2)
  - Fungal infection [Unknown]
  - Pseudomonas infection [Unknown]
